FAERS Safety Report 5374585-5 (Version None)
Quarter: 2007Q2

REPORT INFORMATION
  Report Type: 
  Country: None (occurrence: None)
  Receive Date: 20070627
  Receipt Date: 20070627
  Transmission Date: 20071010
  Serious: No
  Sender: FDA-Public Use
  Company Number: None

PATIENT
  Age: 56 Year
  Sex: Male

DRUGS (1)
  1. BUPROPION HCL [Suspect]
     Indication: AFFECTIVE DISORDER
     Dosage: 100MG EVERY DAY PO
     Route: 048
     Dates: start: 20070517, end: 20070524

REACTIONS (3)
  - AFFECTIVE DISORDER [None]
  - AGITATION [None]
  - CONDITION AGGRAVATED [None]
